FAERS Safety Report 20099843 (Version 1)
Quarter: 2021Q4

REPORT INFORMATION
  Report Type: Spontaneous
  Country: CL (occurrence: CL)
  Receive Date: 20211123
  Receipt Date: 20211123
  Transmission Date: 20220303
  Serious: Yes (Death, Hospitalization, Other)
  Sender: FDA-Public Use
  Company Number: CL-PFIZER INC-202101565572

PATIENT
  Age: 72 Year
  Sex: Female

DRUGS (1)
  1. ENBREL [Suspect]
     Active Substance: ETANERCEPT
     Indication: Product used for unknown indication
     Dosage: UNK
     Route: 065
     Dates: start: 202011

REACTIONS (3)
  - Multiple organ dysfunction syndrome [Fatal]
  - Endocarditis bacterial [Fatal]
  - Pyrexia [Unknown]

NARRATIVE: CASE EVENT DATE: 20211025
